FAERS Safety Report 12209814 (Version 8)
Quarter: 2016Q4

REPORT INFORMATION
  Report Type: Report from Study
  Country: BG (occurrence: BG)
  Receive Date: 20160325
  Receipt Date: 20161125
  Transmission Date: 20170207
  Serious: Yes (Death, Hospitalization)
  Sender: FDA-Public Use
  Company Number: BG-ROCHE-1730479

PATIENT
  Age: 69 Year
  Sex: Female
  Weight: 54 kg

DRUGS (10)
  1. ZARZIO [Concomitant]
     Active Substance: FILGRASTIM
     Indication: NEUTROPENIA
     Route: 042
     Dates: start: 20160320, end: 20160320
  2. RENAPRIL [Concomitant]
     Indication: HYPERTENSION
     Route: 048
     Dates: start: 2012, end: 20160320
  3. SODIUM BICARBONATE I.V. [Concomitant]
     Indication: METABOLIC ACIDOSIS
     Dosage: 8 AMPULE. 8.4 % 20 ML
     Route: 042
     Dates: start: 20160320, end: 20160320
  4. FRAXIPARINE [Concomitant]
     Active Substance: NADROPARIN CALCIUM
     Dosage: 2 AMPULE. 9500IU ANTI-XA IU/ML - 0,6 ML
     Route: 058
     Dates: start: 20160320, end: 20160320
  5. CHLORAMBUCIL [Suspect]
     Active Substance: CHLORAMBUCIL
     Indication: CHRONIC LYMPHOCYTIC LEUKAEMIA
     Dosage: THE LAST DOSE PRIOR TO THE EVENT WAS ADMINISTERED ON 09/MAR/2016 AT 9.30 (27MG)
     Route: 048
     Dates: start: 20150909
  6. MILURIT [Concomitant]
     Active Substance: ALLOPURINOL
     Indication: PROPHYLAXIS
     Route: 048
     Dates: start: 20150907, end: 20160320
  7. METHYLPREDNISOLONE. [Concomitant]
     Active Substance: METHYLPREDNISOLONE
     Indication: ACUTE RESPIRATORY DISTRESS SYNDROME
     Route: 042
     Dates: start: 20160320, end: 20160320
  8. CHLOPHAZOLIN [Concomitant]
     Active Substance: CLONIDINE HYDROCHLORIDE
     Indication: HYPERTENSION
     Route: 048
     Dates: start: 20160320, end: 20160320
  9. PARACETAMOL [Concomitant]
     Active Substance: ACETAMINOPHEN
     Indication: HYPERPYREXIA
     Route: 042
     Dates: start: 20160320, end: 20160320
  10. OBINUTUZUMAB [Suspect]
     Active Substance: OBINUTUZUMAB
     Indication: CHRONIC LYMPHOCYTIC LEUKAEMIA
     Dosage: THE LAST DOSE PRIOR TO THE EVENT WAS ADMINISTERED ON 09/MAR/2016 AT 10:00 (1000MG)
     Route: 042
     Dates: start: 20150909

REACTIONS (1)
  - Septic shock [Fatal]

NARRATIVE: CASE EVENT DATE: 20160319
